FAERS Safety Report 6668694-8 (Version None)
Quarter: 2010Q2

REPORT INFORMATION
  Report Type: 
  Country: None (occurrence: None)
  Receive Date: 20100406
  Receipt Date: 20100330
  Transmission Date: 20101027
  Serious: Yes (Other)
  Sender: FDA-Public Use
  Company Number: PHHY2010AU19734

PATIENT
  Sex: Male
  Weight: 2 kg

DRUGS (1)
  1. EXJADE [Suspect]
     Indication: LEUKOCYTOSIS
     Dosage: 1000 MG, DAILY
     Route: 048
     Dates: start: 20100301, end: 20100314

REACTIONS (3)
  - DEHYDRATION [None]
  - DIARRHOEA [None]
  - INFLUENZA LIKE ILLNESS [None]
